FAERS Safety Report 9164526 (Version 1)
Quarter: 2013Q1

REPORT INFORMATION
  Report Type: Spontaneous
  Country: US (occurrence: US)
  Receive Date: 20130315
  Receipt Date: 20130315
  Transmission Date: 20140127
  Serious: No
  Sender: FDA-Public Use
  Company Number: PHEH2013US005932

PATIENT
  Sex: Female

DRUGS (4)
  1. TASIGNA [Suspect]
     Dosage: 600 MG, UNK
  2. ZOLOFT [Concomitant]
  3. NORVASC [Concomitant]
  4. ADVEL [Concomitant]

REACTIONS (3)
  - Amnesia [Unknown]
  - Bone pain [Unknown]
  - Nausea [Unknown]
